FAERS Safety Report 6473792-8 (Version None)
Quarter: 2009Q4

REPORT INFORMATION
  Report Type: 
  Country: None (occurrence: None)
  Receive Date: 20091204
  Receipt Date: 20090512
  Transmission Date: 20100525
  Serious: No
  Sender: FDA-Public Use
  Company Number: US-BAYER-200915110NA

PATIENT
  Age: 39 Year
  Sex: Female
  Weight: 46 kg

DRUGS (1)
  1. ULTRAVIST 300 [Suspect]
     Indication: FLANK PAIN
     Dosage: TOTAL DAILY DOSE: 75  ML  UNIT DOSE: 100 ML
     Route: 042
     Dates: start: 20090309, end: 20090309

REACTIONS (2)
  - SNEEZING [None]
  - URTICARIA [None]
